FAERS Safety Report 19481685 (Version 1)
Quarter: 2021Q3

REPORT INFORMATION
  Report Type: Spontaneous
  Country: FR (occurrence: FR)
  Receive Date: 20210701
  Receipt Date: 20210701
  Transmission Date: 20211014
  Serious: Yes (Hospitalization)
  Sender: FDA-Public Use
  Company Number: FR-TEVA-2021-FR-1928243

PATIENT
  Age: 60 Year
  Sex: Male
  Weight: 72 kg

DRUGS (14)
  1. PHLOROGLUCINOL (TRIMETHYL ETHER DU) [Concomitant]
     Active Substance: 1,3,5-TRIMETHOXYBENZENE
  2. PREGABALINE MYLAN 25 MG, GELULE [Suspect]
     Active Substance: PREGABALIN
     Indication: NEURALGIA
     Dosage: MONDAY WEDNESDAY FRIDAY
     Route: 048
     Dates: start: 20210320
  3. INSULINE ASPARTE ((LEVURE/SACCHAROMYCES CEREVISIAE)) [Concomitant]
     Active Substance: INSULIN ASPART
  4. GAVISCON [Concomitant]
     Active Substance: ALUMINUM HYDROXIDE\MAGNESIUM CARBONATE
  5. FENTANYL. [Suspect]
     Active Substance: FENTANYL
     Indication: PAIN
     Dosage: 25MCG
     Route: 003
     Dates: start: 20210430
  6. BISOPROLOL (HEMIFUMARATE DE) [Concomitant]
     Active Substance: BISOPROLOL FUMARATE
  7. GABAPENTINE ARROW GENERIQUES 300 MG, GELULE [Suspect]
     Active Substance: GABAPENTIN
     Indication: NEURALGIA
     Dosage: 3DF
     Route: 048
     Dates: start: 20210507, end: 20210520
  8. HEPARINE CALCIQUE [Concomitant]
     Active Substance: HEPARIN CALCIUM
  9. CEFEPIME MYLAN 2 G, POUDRE POUR SOLUTION INJECTABLE [Suspect]
     Active Substance: CEFEPIME HYDROCHLORIDE
     Indication: SEPSIS
     Dosage: 1.5GM
     Route: 042
     Dates: start: 20210512, end: 20210513
  10. HYDROCORTISONE. [Concomitant]
     Active Substance: HYDROCORTISONE
  11. LAROXYL 25 MG, COMPRIME PELLICULE [Suspect]
     Active Substance: AMITRIPTYLINE
     Indication: NEURALGIA
     Dosage: 1DF
     Route: 048
     Dates: start: 20210430, end: 20210518
  12. TRIMEBUTINE [Concomitant]
     Active Substance: TRIMEBUTINE
  13. ONDANSETRON [Concomitant]
     Active Substance: ONDANSETRON
  14. EPOETINE ALFA ((MAMMIFERE/HAMSTER/CELLULES CHO)) [Concomitant]

REACTIONS (1)
  - Encephalopathy [Recovered/Resolved]

NARRATIVE: CASE EVENT DATE: 20210513
